FAERS Safety Report 8409539-5 (Version None)
Quarter: 2012Q2

REPORT INFORMATION
  Report Type: 
  Country: None (occurrence: None)
  Receive Date: 20120531
  Receipt Date: 20120531
  Transmission Date: 20120825
  Serious: No
  Sender: FDA-Public Use
  Company Number: None

PATIENT
  Age: 43 Year
  Sex: Female
  Weight: 97.977 kg

DRUGS (1)
  1. SINGULAIR [Suspect]
     Indication: HYPERSENSITIVITY
     Dosage: 10MG QD PO
     Route: 048
     Dates: start: 20120218, end: 20120426

REACTIONS (8)
  - GAIT DISTURBANCE [None]
  - MYALGIA [None]
  - DYSGRAPHIA [None]
  - MALAISE [None]
  - PAIN [None]
  - CONFUSIONAL STATE [None]
  - DYSPNOEA [None]
  - RED BLOOD CELL SEDIMENTATION RATE INCREASED [None]
